FAERS Safety Report 5232631-3 (Version None)
Quarter: 2007Q1

REPORT INFORMATION
  Report Type: 
  Country: None (occurrence: None)
  Receive Date: 20070206
  Receipt Date: 20070206
  Transmission Date: 20070707
  Serious: Yes (Hospitalization)
  Sender: FDA-Public Use
  Company Number: None

PATIENT
  Sex: Male
  Weight: 104.3273 kg

DRUGS (15)
  1. SPIRONOLACTONE [Suspect]
     Indication: OEDEMA PERIPHERAL
     Dosage: 50 MG DAILY PO
     Route: 048
     Dates: start: 20061029, end: 20061120
  2. AZITHROMYCIN [Concomitant]
  3. BUPROPION HCL [Concomitant]
  4. CYCLOBENZAPRINE HCL [Concomitant]
  5. DOCUSATE [Concomitant]
  6. HYDROXYZINE [Concomitant]
  7. MORPHINE SULFATE [Concomitant]
  8. NICOTINE [Concomitant]
  9. NIFEDIPINE [Concomitant]
  10. OMEPRAZOLE [Concomitant]
  11. OXYCODONE AND ACETAMINOPHEN [Concomitant]
  12. PROCHLORPERAZINE [Concomitant]
  13. RISPERDAL [Concomitant]
  14. SALSALATE [Concomitant]
  15. SPIRONOLACTONE [Concomitant]

REACTIONS (5)
  - CHEST PAIN [None]
  - HYPERKALAEMIA [None]
  - HYPOAESTHESIA [None]
  - NODAL RHYTHM [None]
  - PRODUCTIVE COUGH [None]
